FAERS Safety Report 19154534 (Version 1)
Quarter: 2021Q2

REPORT INFORMATION
  Report Type: Report from Study
  Country: US (occurrence: US)
  Receive Date: 20210419
  Receipt Date: 20210419
  Transmission Date: 20210717
  Serious: Yes (Other)
  Sender: FDA-Public Use
  Company Number: US-JAZZ-2021-US-006757

PATIENT
  Age: 17 Year
  Sex: Female

DRUGS (4)
  1. XYREM [Suspect]
     Active Substance: SODIUM OXYBATE
     Indication: CATAPLEXY
     Dosage: DOSE ADJUSTMENT
     Route: 048
     Dates: start: 201801, end: 201811
  2. XYREM [Suspect]
     Active Substance: SODIUM OXYBATE
     Indication: NARCOLEPSY
     Dosage: 2.25 GRAM, BID
     Route: 048
     Dates: start: 201801, end: 201801
  3. XYREM [Suspect]
     Active Substance: SODIUM OXYBATE
     Dosage: 3.75 GRAM, BID
     Route: 048
     Dates: start: 201811
  4. KETAMINE [Suspect]
     Active Substance: KETAMINE
     Indication: WISDOM TEETH REMOVAL
     Dosage: 50 MG/ML
     Dates: start: 202103, end: 202103

REACTIONS (2)
  - Seizure like phenomena [Unknown]
  - Wisdom teeth removal [Unknown]

NARRATIVE: CASE EVENT DATE: 202103
